FAERS Safety Report 8364760-X (Version None)
Quarter: 2012Q2

REPORT INFORMATION
  Report Type: 
  Country: None (occurrence: None)
  Receive Date: 20120516
  Receipt Date: 20120514
  Transmission Date: 20120825
  Serious: Yes (Other)
  Sender: FDA-Public Use
  Company Number: US-BAYER-2012-048059

PATIENT
  Age: 62 Year
  Sex: Female
  Weight: 66 kg

DRUGS (1)
  1. NAPROXEN SODIUM [Suspect]
     Indication: ANALGESIC THERAPY
     Dosage: UNK
     Route: 048
     Dates: start: 20120511, end: 20120513

REACTIONS (4)
  - HEADACHE [None]
  - ABDOMINAL PAIN UPPER [None]
  - PYREXIA [None]
  - VOMITING [None]
